FAERS Safety Report 5337807-2 (Version None)
Quarter: 2007Q1

REPORT INFORMATION
  Report Type: 
  Country: None (occurrence: None)
  Receive Date: 20070309
  Receipt Date: 20061027
  Transmission Date: 20070707
  Serious: Yes (Hospitalization)
  Sender: FDA-Public Use
  Company Number: US_0412109119

PATIENT
  Age: 65 Year
  Sex: Female
  Weight: 66.8 kg

DRUGS (12)
  1. GEMCITABINE [Suspect]
     Indication: CHEMOTHERAPY
     Dosage: 1000 MG, OTHER, INTRAVENOUS
     Route: 042
     Dates: start: 20040810, end: 20040831
  2. DOCETAXEL (DOCETAXEL) [Concomitant]
  3. PROCRIT [Concomitant]
  4. NEURONTIN [Concomitant]
  5. VICODIN [Concomitant]
  6. QUININE SULFATE [Concomitant]
  7. IBUPROFEN [Concomitant]
  8. POTASSIUM ACETATE [Concomitant]
  9. ATIVAN [Concomitant]
  10. ASPIRIN [Concomitant]
  11. COUMADIN [Concomitant]
  12. IRON (IRON) [Concomitant]

REACTIONS (3)
  - DIARRHOEA [None]
  - NAUSEA [None]
  - VOMITING [None]
